FAERS Safety Report 19720422 (Version 6)
Quarter: 2024Q4

REPORT INFORMATION
  Report Type: Spontaneous
  Country: CA (occurrence: CA)
  Receive Date: 20210818
  Receipt Date: 20241010
  Transmission Date: 20250115
  Serious: Yes (Life-Threatening, Hospitalization, Other)
  Sender: PFIZER
  Company Number: CA-PFIZER INC-202100968695

PATIENT
  Age: 77 Year
  Sex: Male
  Weight: 78 kg

DRUGS (6)
  1. RUXIENCE [Suspect]
     Active Substance: RITUXIMAB-PVVR
     Indication: Rheumatoid arthritis
     Dosage: 1000 MG, DAY 1 AND 15 (Q 0 WEEK, Q 2 WEEKS)
     Route: 042
     Dates: start: 20210721, end: 20210804
  2. RUXIENCE [Suspect]
     Active Substance: RITUXIMAB-PVVR
     Dosage: 1000 MG, DAY 1 AND 15
     Route: 042
     Dates: start: 20210804
  3. RUXIENCE [Suspect]
     Active Substance: RITUXIMAB-PVVR
     Dosage: 1000 MG, DAY 1 AND 15 (LAST DOSE 1/2)
     Route: 042
     Dates: start: 20230222, end: 202302
  4. AMLODIPINE [Concomitant]
     Active Substance: AMLODIPINE BESYLATE
     Indication: Blood pressure abnormal
     Dosage: 1 DF
  5. METHOTREXATE [Concomitant]
     Active Substance: METHOTREXATE
     Dosage: 1 DF
  6. PERINDOPRIL [Concomitant]
     Active Substance: PERINDOPRIL
     Indication: Blood pressure abnormal
     Dosage: 1 DF

REACTIONS (20)
  - Oropharyngeal pain [Not Recovered/Not Resolved]
  - Lacrimation increased [Recovered/Resolved]
  - Rhinorrhoea [Recovered/Resolved]
  - Skin oedema [Unknown]
  - Dyspnoea [Recovered/Resolved]
  - Dysphonia [Recovering/Resolving]
  - Anaphylactic reaction [Recovered/Resolved]
  - Restlessness [Recovering/Resolving]
  - Somnolence [Unknown]
  - Oropharyngeal discomfort [Not Recovered/Not Resolved]
  - Pharyngeal swelling [Not Recovered/Not Resolved]
  - Pharyngitis [Not Recovered/Not Resolved]
  - Ear swelling [Not Recovered/Not Resolved]
  - Throat irritation [Recovering/Resolving]
  - Pain [Recovering/Resolving]
  - Pain in extremity [Recovering/Resolving]
  - Hernia [Unknown]
  - Therapeutic product effect incomplete [Unknown]
  - Snoring [Unknown]
  - Off label use [Unknown]

NARRATIVE: CASE EVENT DATE: 20210101
